FAERS Safety Report 8522390-0 (Version None)
Quarter: 2012Q3

REPORT INFORMATION
  Report Type: 
  Country: None (occurrence: None)
  Receive Date: 20120706
  Receipt Date: 20120702
  Transmission Date: 20120928
  Serious: Yes (Death, Hospitalization)
  Sender: FDA-Public Use
  Company Number: 2012032263

PATIENT
  Age: 60 Year
  Sex: Male

DRUGS (8)
  1. ALLOPURINOL [Concomitant]
  2. PANTOPAZOL (PANTOPRAZOLE SODIUM) [Concomitant]
  3. PRIVIGEN [Suspect]
  4. PRIVIGEN [Suspect]
     Indication: SECONDARY IMMUNODEFICIENCY
     Dosage: 20 G, INFUSION RATE 1.1 - 2.0 ML/MIN, 20 G QD  1 HOUR 25 MINS  : INFUSION RATE: 1.0 - 2.3 ML/MIN
     Route: 042
     Dates: start: 20120329
  5. PRIVIGEN [Suspect]
     Indication: CHRONIC LYMPHOCYTIC LEUKAEMIA
     Dosage: 20 G, INFUSION RATE 1.1 - 2.0 ML/MIN, 20 G QD  1 HOUR 25 MINS  : INFUSION RATE: 1.0 - 2.3 ML/MIN
     Route: 042
     Dates: start: 20120329
  6. PRIVIGEN [Suspect]
     Indication: SECONDARY IMMUNODEFICIENCY
     Dosage: 20 G, INFUSION RATE 1.1 - 2.0 ML/MIN, 20 G QD  1 HOUR 25 MINS  : INFUSION RATE: 1.0 - 2.3 ML/MIN
     Route: 042
     Dates: start: 20120622, end: 20120622
  7. PRIVIGEN [Suspect]
     Indication: CHRONIC LYMPHOCYTIC LEUKAEMIA
     Dosage: 20 G, INFUSION RATE 1.1 - 2.0 ML/MIN, 20 G QD  1 HOUR 25 MINS  : INFUSION RATE: 1.0 - 2.3 ML/MIN
     Route: 042
     Dates: start: 20120622, end: 20120622
  8. METOPROLOL SUCCINATE [Concomitant]

REACTIONS (4)
  - DYSPNOEA AT REST [None]
  - RESPIRATORY FAILURE [None]
  - UNEVALUABLE EVENT [None]
  - RENAL FAILURE [None]
